FAERS Safety Report 4766645-4 (Version None)
Quarter: 2005Q3

REPORT INFORMATION
  Report Type: 
  Country: None (occurrence: None)
  Receive Date: 20050908
  Receipt Date: 20050829
  Transmission Date: 20060218
  Serious: Yes (Hospitalization, Other)
  Sender: FDA-Public Use
  Company Number: 2005121507

PATIENT
  Sex: Male
  Weight: 72.5755 kg

DRUGS (4)
  1. NEURONTIN [Suspect]
     Indication: BACK PAIN
     Dosage: 300 MG (300 MG, 1 IN 1 D)
     Dates: start: 20000101, end: 20040501
  2. BEXTRA [Suspect]
     Indication: ILL-DEFINED DISORDER
     Dates: start: 20040501, end: 20040501
  3. VIOXX [Suspect]
     Indication: ILL-DEFINED DISORDER
     Dates: start: 20000101, end: 20040501
  4. FENTANYL [Suspect]
     Indication: ILL-DEFINED DISORDER
     Dates: start: 20020101, end: 20040501

REACTIONS (10)
  - ALCOHOL USE [None]
  - APHASIA [None]
  - CONVULSION [None]
  - DYSSTASIA [None]
  - ILL-DEFINED DISORDER [None]
  - INADEQUATE ANALGESIA [None]
  - INSOMNIA [None]
  - OVERDOSE [None]
  - ROAD TRAFFIC ACCIDENT [None]
  - SOMNOLENCE [None]
